FAERS Safety Report 6086826-X (Version None)
Quarter: 2009Q1

REPORT INFORMATION
  Report Type: 
  Country: None (occurrence: None)
  Receive Date: 20090213
  Receipt Date: 20090206
  Transmission Date: 20090719
  Serious: Yes (Other)
  Sender: FDA-Public Use
  Company Number: A0767294A

PATIENT
  Age: 62 Year
  Sex: Female

DRUGS (1)
  1. UREA HYDROGEN PEROXIDE (FORMULATION UNKNOWN) (UREA HYDROGEN PEROXIDE) [Suspect]
     Dosage: AURAL
     Route: 001

REACTIONS (2)
  - DEAFNESS TRANSITORY [None]
  - EAR DISCOMFORT [None]
